FAERS Safety Report 6762151-6 (Version None)
Quarter: 2010Q2

REPORT INFORMATION
  Report Type: 
  Country: None (occurrence: None)
  Receive Date: 20100609
  Receipt Date: 20100310
  Transmission Date: 20101027
  Serious: No
  Sender: FDA-Public Use
  Company Number: US-KINGPHARMUSA00001-K201000294

PATIENT
  Sex: Female

DRUGS (6)
  1. EMBEDA [Suspect]
     Indication: ARTHRALGIA
     Dosage: 30 MG, SINGLE
     Route: 048
     Dates: start: 20100309, end: 20100309
  2. ALLERGY MEDICATION [Concomitant]
     Indication: SEASONAL ALLERGY
     Dosage: UNK
  3. ANTIDEPRESSANTS [Concomitant]
     Indication: DEPRESSION
     Dosage: UNK
  4. ANTIHYPERTENSIVES [Concomitant]
     Indication: HYPERTENSION
     Dosage: UNK
  5. CHOLESTEROL- AND TRIGLYCERIDE REDUCERS [Concomitant]
     Indication: BLOOD CHOLESTEROL INCREASED
     Dosage: UNK
  6. PROGESTERONE W/ESTROGENS [Concomitant]
     Dosage: UNK

REACTIONS (4)
  - ABDOMINAL PAIN UPPER [None]
  - EUPHORIC MOOD [None]
  - SOMNOLENCE [None]
  - VOMITING [None]
